FAERS Safety Report 13031316 (Version 2)
Quarter: 2016Q4

REPORT INFORMATION
  Report Type: Spontaneous
  Country: US (occurrence: US)
  Receive Date: 20161215
  Receipt Date: 20161216
  Transmission Date: 20170207
  Serious: Yes (Other)
  Sender: FDA-Public Use
  Company Number: US-GLAXOSMITHKLINE-US2016GSK185212

PATIENT
  Age: 37 Year
  Sex: Female

DRUGS (1)
  1. TANZEUM [Suspect]
     Active Substance: ALBIGLUTIDE
     Indication: GLYCOSYLATED HAEMOGLOBIN INCREASED
     Dosage: 50 MG, WE
     Route: 042
     Dates: start: 201604

REACTIONS (8)
  - Off label use [Unknown]
  - Device leakage [Unknown]
  - Tricuspid valve replacement [Unknown]
  - Product preparation error [Unknown]
  - Weight decreased [Unknown]
  - Exposure via skin contact [Unknown]
  - Device use error [Unknown]
  - Accidental exposure to product [Unknown]

NARRATIVE: CASE EVENT DATE: 201604
